FAERS Safety Report 5942458-2 (Version None)
Quarter: 2008Q4

REPORT INFORMATION
  Report Type: 
  Country: None (occurrence: None)
  Receive Date: 20081105
  Receipt Date: 20081024
  Transmission Date: 20090506
  Serious: Yes (Other)
  Sender: FDA-Public Use
  Company Number: GB-PFIZER INC-2008069012

PATIENT
  Sex: Male

DRUGS (1)
  1. SUTENT [Suspect]
     Indication: RENAL CANCER
     Route: 048
     Dates: start: 20080722

REACTIONS (4)
  - LYMPHOEDEMA [None]
  - NASAL DISCOMFORT [None]
  - ORAL PAIN [None]
  - SKIN ULCER [None]
